FAERS Safety Report 22012778 (Version 2)
Quarter: 2023Q2

REPORT INFORMATION
  Report Type: Spontaneous
  Country: US (occurrence: None)
  Receive Date: 20230220
  Receipt Date: 20230412
  Transmission Date: 20230722
  Serious: No
  Sender: FDA-Public Use
  Company Number: 2023A034710

PATIENT
  Sex: Female

DRUGS (2)
  1. TEZSPIRE [Suspect]
     Active Substance: TEZEPELUMAB-EKKO
  2. DUPILUMAB [Suspect]
     Active Substance: DUPILUMAB

REACTIONS (1)
  - Urticaria [Unknown]
